FAERS Safety Report 5483600-X (Version None)
Quarter: 2007Q4

REPORT INFORMATION
  Report Type: 
  Country: None (occurrence: None)
  Receive Date: 20071010
  Receipt Date: 20071010
  Transmission Date: 20080405
  Serious: No
  Sender: FDA-Public Use
  Company Number: None

PATIENT
  Sex: Male

DRUGS (1)
  1. BUPROPION XL 300MG [Suspect]
     Dosage: TAKE 1 TABLE BY MOUTH DAILY
     Route: 048
     Dates: start: 20071002

REACTIONS (1)
  - DRUG INEFFECTIVE [None]
